FAERS Safety Report 7334582-7 (Version None)
Quarter: 2011Q1

REPORT INFORMATION
  Report Type: 
  Country: None (occurrence: None)
  Receive Date: 20110307
  Receipt Date: 20101008
  Transmission Date: 20110831
  Serious: No
  Sender: FDA-Public Use
  Company Number: A0886630A

PATIENT
  Sex: Female

DRUGS (1)
  1. REQUIP [Suspect]
     Dosage: 2.5MG UNKNOWN
     Route: 065

REACTIONS (4)
  - NAUSEA [None]
  - ADVERSE DRUG REACTION [None]
  - JOINT SWELLING [None]
  - OEDEMA PERIPHERAL [None]
